FAERS Safety Report 9030193 (Version 2)
Quarter: 2013Q1

REPORT INFORMATION
  Report Type: Spontaneous
  Country: FR (occurrence: FR)
  Receive Date: 20130125
  Receipt Date: 20130301
  Transmission Date: 20140127
  Serious: Yes (Hospitalization)
  Sender: FDA-Public Use
  Company Number: FR-009507513-1301FRA007948

PATIENT
  Age: 79 Year
  Sex: Male

DRUGS (5)
  1. JANUVIA [Suspect]
     Dosage: UNK
     Route: 048
  2. TRILEPTAL [Suspect]
     Indication: PARTIAL SEIZURES
     Dosage: UNK
     Route: 048
     Dates: end: 20120901
  3. PRETERAX [Suspect]
     Dosage: UNK
     Route: 048
  4. INEXIUM [Suspect]
     Dosage: UNK
     Route: 048
  5. DIAMICRON [Suspect]
     Dosage: UNK
     Route: 048

REACTIONS (3)
  - Hyponatraemia [Recovered/Resolved]
  - Malaise [Recovered/Resolved]
  - Vomiting [Recovered/Resolved]
